FAERS Safety Report 4495601-9 (Version None)
Quarter: 2004Q4

REPORT INFORMATION
  Report Type: 
  Country: None (occurrence: None)
  Receive Date: 20041108
  Receipt Date: 20041026
  Transmission Date: 20050328
  Serious: Yes (Hospitalization, Other)
  Sender: FDA-Public Use
  Company Number: US-BRISTOL-MYERS SQUIBB COMPANY-12745139

PATIENT
  Age: 77 Year
  Sex: Male

DRUGS (3)
  1. CARBOPLATIN [Suspect]
     Indication: OESOPHAGEAL CARCINOMA
     Dosage: AUC 6. DAY 11
     Route: 042
     Dates: start: 20040715, end: 20040715
  2. PACLITAXEL [Suspect]
     Indication: OESOPHAGEAL CARCINOMA
     Dosage: 200 MG/M2. DAY 11
     Route: 042
     Dates: start: 20040715, end: 20040715
  3. FLUOROURACIL [Suspect]
     Indication: OESOPHAGEAL CARCINOMA
     Dosage: 225 MG/M2.  START DATE:  15-JUL-2004. DAY 11
     Route: 042
     Dates: start: 20040725, end: 20040725

REACTIONS (2)
  - DIARRHOEA HAEMORRHAGIC [None]
  - NEUTROPENIA [None]
